FAERS Safety Report 11702962 (Version 1)
Quarter: 2015Q4

REPORT INFORMATION
  Report Type: Spontaneous
  Country: US (occurrence: US)
  Receive Date: 20151105
  Receipt Date: 20151105
  Transmission Date: 20160304
  Serious: No
  Sender: FDA-Public Use
  Company Number: US-APOPHARMA USA, INC.-2013AP000090

PATIENT
  Age: 47 Year
  Sex: Female
  Weight: 52 kg

DRUGS (8)
  1. CALCIUM [Concomitant]
     Active Substance: CALCIUM
     Route: 048
  2. SINGULAIR [Concomitant]
     Active Substance: MONTELUKAST SODIUM
  3. ALBUTEROL                          /00139501/ [Concomitant]
     Active Substance: ALBUTEROL
  4. MULTIVITAMIN /00831701/ [Concomitant]
     Active Substance: VITAMINS
     Route: 048
  5. VITAMIN D                          /00107901/ [Concomitant]
     Active Substance: ERGOCALCIFEROL
     Route: 048
  6. FERRIPROX [Suspect]
     Active Substance: DEFERIPRONE
     Indication: SUPERFICIAL SIDEROSIS OF CENTRAL NERVOUS SYSTEM
     Route: 048
     Dates: start: 20120315, end: 20121227
  7. FLOVENT [Concomitant]
     Active Substance: FLUTICASONE PROPIONATE
  8. DIAZEPAM. [Concomitant]
     Active Substance: DIAZEPAM
     Route: 048

REACTIONS (2)
  - Decreased appetite [Recovering/Resolving]
  - Weight decreased [Recovering/Resolving]

NARRATIVE: CASE EVENT DATE: 201211
